FAERS Safety Report 18790805 (Version 2)
Quarter: 2022Q2

REPORT INFORMATION
  Report Type: Spontaneous
  Country: US (occurrence: US)
  Receive Date: 20210126
  Receipt Date: 20220415
  Transmission Date: 20220721
  Serious: No
  Sender: FDA-Public Use
  Company Number: US-PFIZER INC-2021051078

PATIENT
  Age: 75 Year
  Sex: Female

DRUGS (1)
  1. AMLODIPINE BESYLATE [Suspect]
     Active Substance: AMLODIPINE BESYLATE
     Dosage: UNK

REACTIONS (6)
  - Drug ineffective [Unknown]
  - Illness [Unknown]
  - Abdominal distension [Unknown]
  - Taste disorder [Unknown]
  - Peripheral swelling [Unknown]
  - Joint swelling [Unknown]
